FAERS Safety Report 8403680 (Version 4)
Quarter: 2017Q1

REPORT INFORMATION
  Report Type: Spontaneous
  Country: FR (occurrence: FR)
  Receive Date: 20120213
  Receipt Date: 20170308
  Transmission Date: 20170429
  Serious: Yes (Other)
  Sender: FDA-Public Use
  Company Number: FR-ALLERGAN-1201782US

PATIENT
  Age: 95 Year
  Sex: Male

DRUGS (1)
  1. GANFORT [Suspect]
     Active Substance: BIMATOPROST\TIMOLOL
     Indication: GLAUCOMA
     Dosage: 1 GTT, QHS
     Route: 047

REACTIONS (4)
  - Choroidal detachment [Recovered/Resolved]
  - Conjunctival hyperaemia [Recovered/Resolved]
  - Eye pain [Recovered/Resolved]
  - Ocular hyperaemia [Recovered/Resolved]
